FAERS Safety Report 9248050 (Version 1)
Quarter: 2013Q2

REPORT INFORMATION
  Report Type: Spontaneous
  Country: US (occurrence: None)
  Receive Date: 20130419
  Receipt Date: 20130419
  Transmission Date: 20140414
  Serious: No
  Sender: FDA-Public Use
  Company Number: None

PATIENT
  Age: 81 Year
  Sex: Female
  Weight: 70.4 kg

DRUGS (1)
  1. AMPHOTERICIN [Suspect]
     Route: 042
     Dates: start: 20121005, end: 20121009

REACTIONS (2)
  - Renal failure acute [None]
  - Dialysis [None]
